FAERS Safety Report 4357530-0 (Version None)
Quarter: 2004Q2

REPORT INFORMATION
  Report Type: 
  Country: None (occurrence: None)
  Receive Date: 20040510
  Receipt Date: 20040429
  Transmission Date: 20050107
  Serious: Yes (Hospitalization)
  Sender: FDA-Public Use
  Company Number: BE-JNJFOC-20040406414

PATIENT
  Age: 43 Year
  Sex: Female

DRUGS (3)
  1. REMICADE [Suspect]
     Indication: RHEUMATOID ARTHRITIS
     Dosage: 3 MG/KG INTRAVENOUS
     Route: 042
     Dates: start: 20030402, end: 20031021
  2. LEDERTREXATE (METHOREXATE) [Concomitant]
  3. FOLIC ACID [Concomitant]

REACTIONS (3)
  - DNA ANTIBODY POSITIVE [None]
  - PERICARDITIS [None]
  - WHITE BLOOD CELL COUNT DECREASED [None]
